FAERS Safety Report 21156154 (Version 1)
Quarter: 2022Q3

REPORT INFORMATION
  Report Type: Other
  Country: US (occurrence: None)
  Receive Date: 20220801
  Receipt Date: 20220801
  Transmission Date: 20221026
  Serious: No
  Sender: FDA-Public Use
  Company Number: US-ROCHE-3151617

PATIENT
  Sex: Male
  Weight: 102.15 kg

DRUGS (1)
  1. OCREVUS [Suspect]
     Active Substance: OCRELIZUMAB
     Indication: Multiple sclerosis
     Dosage: ON DAYS 1 AND 15 THEN INFUSE 600MG EVERY 6 MONTHS
     Route: 042
     Dates: start: 2019, end: 202012

REACTIONS (1)
  - COVID-19 [Unknown]
